FAERS Safety Report 4834801-2 (Version None)
Quarter: 2005Q4

REPORT INFORMATION
  Report Type: 
  Country: None (occurrence: None)
  Receive Date: 20051122
  Receipt Date: 20051107
  Transmission Date: 20060501
  Serious: Yes (Death)
  Sender: FDA-Public Use
  Company Number: PHRM2005FR02912

PATIENT
  Age: 70 Year
  Sex: Male

DRUGS (2)
  1. ETOPOSIDE [Suspect]
     Indication: LUNG NEOPLASM MALIGNANT
     Dosage: UNK, UNK
     Route: 042
     Dates: start: 20051010
  2. ZOMETA [Suspect]
     Indication: HYPERCALCAEMIA OF MALIGNANCY
     Dosage: 4 MG IN THE MORNING
     Route: 042
     Dates: start: 20051010

REACTIONS (4)
  - ANURIA [None]
  - DISSEMINATED INTRAVASCULAR COAGULATION [None]
  - HAEMOPTYSIS [None]
  - HAEMORRHAGE [None]
